FAERS Safety Report 9587970 (Version 1)
Quarter: 2013Q4

REPORT INFORMATION
  Report Type: Report from Study
  Country: FR (occurrence: FR)
  Receive Date: 20131003
  Receipt Date: 20131003
  Transmission Date: 20140711
  Serious: Yes (Other)
  Sender: FDA-Public Use
  Company Number: PHHY2013FR097657

PATIENT
  Sex: Female

DRUGS (1)
  1. STI571 [Suspect]
     Dosage: 300 MG, PER DAY
     Dates: start: 20110502

REACTIONS (4)
  - Biliary cirrhosis [Unknown]
  - Ascites [Unknown]
  - Oedema peripheral [Unknown]
  - Pancytopenia [Unknown]
